FAERS Safety Report 5100149-4 (Version None)
Quarter: 2006Q3

REPORT INFORMATION
  Report Type: 
  Country: None (occurrence: None)
  Receive Date: 20060908
  Receipt Date: 20060824
  Transmission Date: 20061208
  Serious: Yes (Hospitalization)
  Sender: FDA-Public Use
  Company Number: JP-ABBOTT-06P-087-0342092-00

PATIENT
  Age: 5 Year
  Sex: Male
  Weight: 15 kg

DRUGS (6)
  1. ERYTHROCIN DRY SYRUP W 20% [Suspect]
     Indication: OTITIS MEDIA
     Route: 048
     Dates: start: 20060810, end: 20060816
  2. ERYTHROCIN DRY SYRUP W 20% [Suspect]
     Route: 048
     Dates: start: 20060801, end: 20060805
  3. CARBOCISTEINE LYSINE [Concomitant]
     Indication: OTITIS MEDIA
     Route: 048
     Dates: start: 20060801, end: 20060805
  4. CARBOCISTEINE LYSINE [Concomitant]
     Route: 048
     Dates: start: 20060810, end: 20060816
  5. OXATOMIDE [Concomitant]
     Indication: OTITIS MEDIA
     Route: 048
     Dates: start: 20060801, end: 20060805
  6. OXATOMIDE [Concomitant]
     Route: 048
     Dates: start: 20060810, end: 20060816

REACTIONS (1)
  - CHOLECYSTITIS ACUTE [None]
